FAERS Safety Report 6615241-2 (Version None)
Quarter: 2010Q1

REPORT INFORMATION
  Report Type: 
  Country: None (occurrence: None)
  Receive Date: 20100226
  Receipt Date: 20091207
  Transmission Date: 20100710
  Serious: Yes (Hospitalization)
  Sender: FDA-Public Use
  Company Number: 007368

PATIENT
  Sex: Male

DRUGS (5)
  1. KEPPRA [Suspect]
     Indication: PARTIAL SEIZURES
     Dosage: (750 MG BID ORAL)
     Route: 048
     Dates: end: 20090801
  2. CENTYL [Concomitant]
  3. GLIMEPIRIDE [Concomitant]
  4. ALBYL-E [Concomitant]
  5. ONMIC [Concomitant]

REACTIONS (3)
  - DYSPHAGIA [None]
  - GASTROOESOPHAGEAL REFLUX DISEASE [None]
  - OESOPHAGITIS [None]
